FAERS Safety Report 19875653 (Version 1)
Quarter: 2021Q3

REPORT INFORMATION
  Report Type: Other
  Country: IT (occurrence: IT)
  Receive Date: 20210924
  Receipt Date: 20210924
  Transmission Date: 20211014
  Serious: Yes (Other)
  Sender: FDA-Public Use
  Company Number: IT-SAPTALIS PHARMACEUTICALS,LLC-000115

PATIENT
  Age: 71 Year
  Sex: Male

DRUGS (2)
  1. TRIAMCINOLONE ACETONIDE. [Suspect]
     Active Substance: TRIAMCINOLONE ACETONIDE
     Indication: OSTEOARTHRITIS
     Dosage: INJECTED 1ML OF TRIAMCINOLONE (40MG/ML) IN THE TIBIOTALAR JOINT
     Route: 014
  2. HYDROCORTISONE ACETATE. [Suspect]
     Active Substance: HYDROCORTISONE ACETATE
     Indication: PRODUCT USED FOR UNKNOWN INDICATION

REACTIONS (5)
  - Dermatitis allergic [Recovered/Resolved]
  - Erythema multiforme [Recovered/Resolved]
  - Cross sensitivity reaction [Recovered/Resolved]
  - Symmetrical drug-related intertriginous and flexural exanthema [Recovered/Resolved]
  - Type IV hypersensitivity reaction [Recovered/Resolved]
